FAERS Safety Report 7110786-3 (Version None)
Quarter: 2010Q4

REPORT INFORMATION
  Report Type: 
  Country: None (occurrence: None)
  Receive Date: 20101118
  Receipt Date: 20101106
  Transmission Date: 20110411
  Serious: Yes (Hospitalization, Other)
  Sender: FDA-Public Use
  Company Number: CN-PAR PHARMACEUTICAL, INC-2010SCPR002289

PATIENT
  Age: 31 Year
  Sex: Male

DRUGS (3)
  1. DEXAMETHASONE [Suspect]
     Indication: ALLERGY PROPHYLAXIS
     Dosage: TOTAL DOSE 25MG
     Route: 065
  2. DEXAMETHASONE [Suspect]
     Dosage: 5 MG, UNKNOWN
     Route: 051
     Dates: start: 20080505
  3. DEXAMETHASONE [Suspect]
     Dosage: 10 MG, UNK
     Route: 065
     Dates: start: 20080515

REACTIONS (11)
  - ABDOMINAL INFECTION [None]
  - ASPERGILLOSIS [None]
  - BACTERIAL INFECTION [None]
  - BLINDNESS UNILATERAL [None]
  - HEMIPLEGIA [None]
  - MENTAL STATUS CHANGES [None]
  - MULTI-ORGAN FAILURE [None]
  - PERICARDIAL EFFUSION [None]
  - PERICARDITIS CONSTRICTIVE [None]
  - PLEURAL EFFUSION [None]
  - UVEITIS [None]
